FAERS Safety Report 10579152 (Version 2)
Quarter: 2015Q2

REPORT INFORMATION
  Report Type: Spontaneous
  Country: AU (occurrence: AU)
  Receive Date: 20141112
  Receipt Date: 20150618
  Transmission Date: 20150821
  Serious: Yes (Hospitalization, Other)
  Sender: FDA-Public Use
  Company Number: AU-ACTELION-A-CH2014-107751

PATIENT
  Age: 54 Year
  Sex: Female

DRUGS (2)
  1. OPSUMIT [Suspect]
     Active Substance: MACITENTAN
     Indication: PULMONARY ARTERIAL HYPERTENSION
     Dosage: 10 MG, UNK
     Route: 048
     Dates: start: 20140619
  2. VELETRI [Suspect]
     Active Substance: EPOPROSTENOL
     Indication: PULMONARY ARTERIAL HYPERTENSION
     Dosage: UNK
     Route: 041

REACTIONS (5)
  - Wrong technique in drug usage process [Unknown]
  - Condition aggravated [Unknown]
  - Pulmonary arterial hypertension [Unknown]
  - Viral infection [Unknown]
  - Malaise [Unknown]

NARRATIVE: CASE EVENT DATE: 2014
